FAERS Safety Report 4341384-2 (Version None)
Quarter: 2004Q2

REPORT INFORMATION
  Report Type: 
  Country: None (occurrence: None)
  Receive Date: 20040413
  Receipt Date: 20040329
  Transmission Date: 20050107
  Serious: Yes (Death)
  Sender: FDA-Public Use
  Company Number: 2003-BP-05398PF

PATIENT
  Age: 77 Year
  Sex: Female

DRUGS (4)
  1. SPIRIVA [Suspect]
     Dosage: (18 MCG), IH
     Route: 055
  2. LANITOP (METILDIGOXIN) [Concomitant]
  3. LAXIX (LASIX [Concomitant]
  4. OXYGEN (OXYGEN) [Concomitant]

REACTIONS (4)
  - CARDIAC ARREST [None]
  - HYPOXIA [None]
  - RENAL FAILURE ACUTE [None]
  - RESPIRATORY FAILURE [None]
